FAERS Safety Report 8325244-8 (Version None)
Quarter: 2012Q2

REPORT INFORMATION
  Report Type: 
  Country: None (occurrence: None)
  Receive Date: 20120501
  Receipt Date: 20120423
  Transmission Date: 20120825
  Serious: Yes (Hospitalization)
  Sender: FDA-Public Use
  Company Number: FR-ROXANE LABORATORIES, INC.-2012-RO-01109RO

PATIENT
  Age: 13 Year
  Sex: Male

DRUGS (2)
  1. METHOTREXATE [Suspect]
     Indication: LEUKAEMIA RECURRENT
  2. THIOGUANINE [Suspect]
     Indication: LEUKAEMIA RECURRENT

REACTIONS (1)
  - CRYPTOSPORIDIOSIS INFECTION [None]
